FAERS Safety Report 4751300-7 (Version None)
Quarter: 2005Q3

REPORT INFORMATION
  Report Type: 
  Country: None (occurrence: None)
  Receive Date: 20050822
  Receipt Date: 20050822
  Transmission Date: 20060218
  Serious: Yes (Life-Threatening)
  Sender: FDA-Public Use
  Company Number: None

PATIENT
  Sex: Female
  Weight: 64.4108 kg

DRUGS (2)
  1. NOVOLOG [Suspect]
     Indication: DIABETES MELLITUS INSULIN-DEPENDENT
     Dosage: 18-19.5 UNITS/DAY   CSIII
     Route: 058
     Dates: start: 20050818, end: 20050821
  2. NOVOLOG [Suspect]
     Indication: DIABETES MELLITUS INSULIN-DEPENDENT
     Dosage: 18-19.5 UNITS/DAY   CSIII
     Route: 058
     Dates: start: 20050821, end: 20050824

REACTIONS (4)
  - ADVERSE EVENT [None]
  - BLOOD GLUCOSE FLUCTUATION [None]
  - HYPOGLYCAEMIA [None]
  - IMPAIRED DRIVING ABILITY [None]
